FAERS Safety Report 19040638 (Version 1)
Quarter: 2021Q1

REPORT INFORMATION
  Report Type: Spontaneous
  Country: ES (occurrence: ES)
  Receive Date: 20210322
  Receipt Date: 20210322
  Transmission Date: 20210420
  Serious: Yes (Other)
  Sender: FDA-Public Use
  Company Number: ES-LUPIN PHARMACEUTICALS INC.-2021-03490

PATIENT
  Age: 26 Year
  Sex: Male

DRUGS (3)
  1. MINOCYCLINE [Suspect]
     Active Substance: MINOCYCLINE HYDROCHLORIDE
     Indication: FOREIGN BODY REACTION
     Dosage: 100 MILLIGRAM, QD
     Route: 065
  2. MINERAL OIL. [Concomitant]
     Active Substance: MINERAL OIL
     Indication: SKIN COSMETIC PROCEDURE
     Dosage: UNK, (INFILTRATIONS WITH MINERAL OIL IN THE GLUTEAL REGION; ON MORE THAN 30 OCCASIONS)
     Route: 065
  3. HYDROXYCHLOROQUINE [Suspect]
     Active Substance: HYDROXYCHLOROQUINE
     Indication: FOREIGN BODY REACTION
     Dosage: 400 MILLIGRAM, QD
     Route: 065

REACTIONS (1)
  - Drug ineffective [Unknown]
